FAERS Safety Report 6083936-8 (Version None)
Quarter: 2009Q1

REPORT INFORMATION
  Report Type: 
  Country: None (occurrence: None)
  Receive Date: 20090217
  Receipt Date: 20090217
  Transmission Date: 20090719
  Serious: Yes (Other)
  Sender: FDA-Public Use
  Company Number: None

PATIENT
  Sex: Female

DRUGS (1)
  1. LEVOTHYROXINE SODIUM [Suspect]
     Indication: HYPOTHYROIDISM
     Dosage: 50 MGM PO QD
     Route: 048
     Dates: start: 20080108

REACTIONS (3)
  - HEADACHE [None]
  - NAUSEA [None]
  - PRODUCT QUALITY ISSUE [None]
